FAERS Safety Report 16123656 (Version 1)
Quarter: 2019Q1

REPORT INFORMATION
  Report Type: Report from Study
  Country: US (occurrence: US)
  Receive Date: 20190327
  Receipt Date: 20190327
  Transmission Date: 20190418
  Serious: Yes (Other)
  Sender: FDA-Public Use
  Company Number: US-GILEAD-2019-0398928

PATIENT
  Age: 70 Year
  Sex: Female

DRUGS (4)
  1. WARFARIN [Concomitant]
     Active Substance: WARFARIN
  2. ADCIRCA [Concomitant]
     Active Substance: TADALAFIL
  3. AMBRISENTAN [Suspect]
     Active Substance: AMBRISENTAN
     Indication: PRODUCT USED FOR UNKNOWN INDICATION
     Dosage: 5 MG, QD
     Route: 065
     Dates: start: 20161212, end: 201903
  4. NIFEDIPINE. [Concomitant]
     Active Substance: NIFEDIPINE

REACTIONS (3)
  - Scleroderma [Not Recovered/Not Resolved]
  - Dyspnoea [Unknown]
  - Nasal congestion [Unknown]
